FAERS Safety Report 16128126 (Version 1)
Quarter: 2019Q1

REPORT INFORMATION
  Report Type: Spontaneous
  Country: CA (occurrence: CA)
  Receive Date: 20190328
  Receipt Date: 20190328
  Transmission Date: 20190418
  Serious: Yes (Death, Hospitalization)
  Sender: FDA-Public Use
  Company Number: CA-PFIZER INC-HQWYE368206SEP06

PATIENT
  Age: 2 Year
  Sex: Female

DRUGS (14)
  1. TACROLIMUS. [Interacting]
     Active Substance: TACROLIMUS
     Indication: IMMUNOSUPPRESSION
     Dosage: 0.2 MG, 2X/DAY
     Route: 048
  2. TACROLIMUS. [Interacting]
     Active Substance: TACROLIMUS
     Dosage: 0.4 MG, 2X/DAY
     Route: 048
  3. NADOLOL. [Concomitant]
     Active Substance: NADOLOL
     Indication: VENTRICULAR ARRHYTHMIA
     Dosage: UNK
     Route: 065
  4. PREDNISOLONE. [Concomitant]
     Active Substance: PREDNISOLONE
     Dosage: UNK
     Route: 065
  5. RAPAMUNE [Suspect]
     Active Substance: SIROLIMUS
     Indication: IMMUNOSUPPRESSION
     Dosage: 0.3 MG, DAILY
     Route: 048
  6. AMIODARONE HCL [Interacting]
     Active Substance: AMIODARONE HYDROCHLORIDE
     Indication: VENTRICULAR ARRHYTHMIA
     Dosage: 75 MG, 2X/DAY (ONCE IN 12 HOURS)
     Route: 048
  7. AMIODARONE HCL [Interacting]
     Active Substance: AMIODARONE HYDROCHLORIDE
     Dosage: 50 MG, 2X/DAY
     Route: 048
  8. METHYLPREDNISOLONE SODIUM SUCCINATE. [Concomitant]
     Active Substance: METHYLPREDNISOLONE SODIUM SUCCINATE
     Dosage: UNK
     Route: 065
  9. RAPAMUNE [Interacting]
     Active Substance: SIROLIMUS
     Dosage: 1 MG, 1X/DAY
     Route: 048
  10. CELLCEPT [Concomitant]
     Active Substance: MYCOPHENOLATE MOFETIL\MYCOPHENOLATE MOFETIL HYDROCHLORIDE
     Dosage: 100 MG, 2X/DAY
     Route: 048
  11. THYMOGLOBULINE [Concomitant]
     Active Substance: LAPINE T-LYMPHOCYTE IMMUNE GLOBULIN
     Dosage: UNK
     Route: 065
  12. MYCOPHENOLATE MOFETIL. [Concomitant]
     Active Substance: MYCOPHENOLATE MOFETIL
     Dosage: 100 MG, 2X/DAY
     Route: 048
  13. RAPAMUNE [Interacting]
     Active Substance: SIROLIMUS
     Dosage: 0.5 MG, 1X/DAY
     Route: 048
  14. RAPAMUNE [Interacting]
     Active Substance: SIROLIMUS
     Dosage: 2 MG, 1X/DAY
     Route: 048

REACTIONS (17)
  - Ventricular tachycardia [Fatal]
  - International normalised ratio increased [Fatal]
  - Transaminases increased [Fatal]
  - Hyperbilirubinaemia [Fatal]
  - Haemoglobin decreased [Fatal]
  - Disturbance in attention [Fatal]
  - Right ventricular dysfunction [Fatal]
  - Pyrexia [Fatal]
  - Electrocardiogram abnormal [Fatal]
  - Drug interaction [Fatal]
  - Complication associated with device [Fatal]
  - White blood cell count decreased [Fatal]
  - Renal impairment [Fatal]
  - Anaemia [Fatal]
  - Drug level increased [Fatal]
  - Blood albumin increased [Fatal]
  - Ejection fraction decreased [Fatal]
